FAERS Safety Report 6716092-0 (Version None)
Quarter: 2010Q2

REPORT INFORMATION
  Report Type: 
  Country: None (occurrence: None)
  Receive Date: 20100507
  Receipt Date: 20100427
  Transmission Date: 20101027
  Serious: Yes (Hospitalization, Other)
  Sender: FDA-Public Use
  Company Number: B0649267A

PATIENT
  Age: 63 Year
  Sex: Female

DRUGS (5)
  1. PAXIL [Suspect]
     Indication: DRUG USE FOR UNKNOWN INDICATION
     Route: 048
  2. BROMAZEPAM [Concomitant]
  3. ETIZOLAM [Concomitant]
  4. AMOXAPINE [Concomitant]
  5. BIPERIDEN HYDROCHLORIDE TAB [Concomitant]

REACTIONS (6)
  - APHASIA [None]
  - DELIRIUM [None]
  - DEMENTIA [None]
  - DISORIENTATION [None]
  - MEMORY IMPAIRMENT [None]
  - MENTAL IMPAIRMENT [None]
